FAERS Safety Report 17705351 (Version 1)
Quarter: 2020Q2

REPORT INFORMATION
  Report Type: Spontaneous
  Country: US (occurrence: US)
  Receive Date: 20200424
  Receipt Date: 20200424
  Transmission Date: 20200714
  Serious: No
  Sender: FDA-Public Use
  Company Number: US-ALKERMES INC.-ALK-2020-001691

PATIENT
  Age: 19 Year
  Sex: Female

DRUGS (2)
  1. VIVITROL [Suspect]
     Active Substance: NALTREXONE
     Indication: ALCOHOLISM
     Dosage: 380 MG, QMO
     Route: 030
     Dates: start: 20200404, end: 20200404
  2. VIVITROL [Suspect]
     Active Substance: NALTREXONE
     Dosage: 380 MG, QMO
     Route: 030

REACTIONS (11)
  - Pyrexia [Unknown]
  - Sexual dysfunction [Unknown]
  - Chills [Unknown]
  - Toothache [Unknown]
  - Suicidal ideation [Unknown]
  - Rash [Unknown]
  - Constipation [Unknown]
  - Nightmare [Unknown]
  - Insomnia [Unknown]
  - Gastrointestinal pain [Unknown]
  - Pain [Unknown]
